FAERS Safety Report 21935923 (Version 2)
Quarter: 2023Q1

REPORT INFORMATION
  Report Type: Spontaneous
  Country: AR (occurrence: AR)
  Receive Date: 20230201
  Receipt Date: 20230307
  Transmission Date: 20230418
  Serious: No
  Sender: FDA-Public Use
  Company Number: AR-PFIZER INC-PV202300008287

PATIENT
  Age: 6 Year
  Sex: Male

DRUGS (1)
  1. GENOTROPIN [Suspect]
     Active Substance: SOMATROPIN
     Indication: Prader-Willi syndrome
     Dosage: 1 - 1.4 MG (6 TIMES A WEEK)
     Dates: start: 20180516

REACTIONS (4)
  - Device failure [Unknown]
  - Device issue [Unknown]
  - Device information output issue [Unknown]
  - Device use issue [Unknown]

NARRATIVE: CASE EVENT DATE: 20221201
